FAERS Safety Report 16116406 (Version 2)
Quarter: 2019Q2

REPORT INFORMATION
  Report Type: Spontaneous
  Country: US (occurrence: US)
  Receive Date: 20190326
  Receipt Date: 20190402
  Transmission Date: 20190711
  Serious: No
  Sender: FDA-Public Use
  Company Number: US-LEO PHARMA-317456

PATIENT
  Age: 64 Year
  Sex: Female

DRUGS (1)
  1. PICATO [Suspect]
     Active Substance: INGENOL MEBUTATE
     Indication: ACTINIC KERATOSIS
     Route: 061
     Dates: start: 20190312, end: 20190313

REACTIONS (7)
  - Application site inflammation [Recovering/Resolving]
  - Application site burn [Unknown]
  - Application site induration [Recovering/Resolving]
  - Application site vesicles [Recovering/Resolving]
  - Application site erythema [Recovering/Resolving]
  - Application site pain [Recovering/Resolving]
  - Product administration error [Unknown]
